FAERS Safety Report 11039124 (Version 3)
Quarter: 2015Q3

REPORT INFORMATION
  Report Type: Spontaneous
  Country: US (occurrence: US)
  Receive Date: 20150416
  Receipt Date: 20150825
  Transmission Date: 20151125
  Serious: No
  Sender: FDA-Public Use
  Company Number: US-PFIZER INC-2015125903

PATIENT
  Age: 83 Year
  Sex: Female
  Weight: 65 kg

DRUGS (2)
  1. LOSARTAN. [Concomitant]
     Active Substance: LOSARTAN
     Indication: HYPERTENSION
     Dosage: 50 MG, UNK
  2. LYRICA [Suspect]
     Active Substance: PREGABALIN
     Indication: NEUROPATHY PERIPHERAL
     Dosage: 75 MG, 2X/DAY
     Dates: start: 201503

REACTIONS (6)
  - Arthropathy [Unknown]
  - Drug ineffective [Recovered/Resolved]
  - Paraesthesia [Recovered/Resolved]
  - Drug intolerance [Recovered/Resolved]
  - Gait disturbance [Unknown]
  - Anxiety [Recovered/Resolved]

NARRATIVE: CASE EVENT DATE: 201503
